FAERS Safety Report 12133852 (Version 2)
Quarter: 2016Q2

REPORT INFORMATION
  Report Type: Spontaneous
  Country: US (occurrence: US)
  Receive Date: 20160301
  Receipt Date: 20160412
  Transmission Date: 20160815
  Serious: Yes (Other)
  Sender: FDA-Public Use
  Company Number: US-PFIZER INC-2016123737

PATIENT
  Age: 67 Year
  Sex: Female
  Weight: 46 kg

DRUGS (5)
  1. ZOLOFT [Interacting]
     Active Substance: SERTRALINE HYDROCHLORIDE
     Dosage: 50 MG, 1X/DAY
     Dates: start: 20160105
  2. XANAX [Interacting]
     Active Substance: ALPRAZOLAM
     Indication: POST-TRAUMATIC STRESS DISORDER
     Dosage: 1 ? - 2, 25 MG (TAKING 1 ? ABOUT 70% OF THE TIME)
     Dates: start: 201602
  3. PREVACID [Concomitant]
     Active Substance: LANSOPRAZOLE
     Dosage: UNK, AS NEEDED
  4. XANAX [Interacting]
     Active Substance: ALPRAZOLAM
     Indication: PANIC ATTACK
     Dosage: 25MG 3-4 TIMES A DAY
  5. ZOLOFT [Suspect]
     Active Substance: SERTRALINE HYDROCHLORIDE
     Indication: PANIC DISORDER
     Dosage: 25 MG, UNK
     Dates: start: 20151205, end: 2016

REACTIONS (9)
  - Arrhythmia [Not Recovered/Not Resolved]
  - Asthenopia [Not Recovered/Not Resolved]
  - Vascular rupture [Recovering/Resolving]
  - Eye pain [Not Recovered/Not Resolved]
  - Drug interaction [Unknown]
  - Intraocular pressure test [Recovering/Resolving]
  - Drug withdrawal syndrome [Not Recovered/Not Resolved]
  - Eye allergy [Unknown]
  - Ocular discomfort [Not Recovered/Not Resolved]

NARRATIVE: CASE EVENT DATE: 2016
